FAERS Safety Report 6305514-5 (Version None)
Quarter: 2009Q3

REPORT INFORMATION
  Report Type: 
  Country: None (occurrence: None)
  Receive Date: 20090807
  Receipt Date: 20090620
  Transmission Date: 20100115
  Serious: Yes (Hospitalization)
  Sender: FDA-Public Use
  Company Number: 2009EU002881

PATIENT
  Age: 71 Year
  Sex: Male

DRUGS (15)
  1. TACROLIMUS [Suspect]
     Indication: RENAL TRANSPLANT
     Dosage: 10 MG, UID/QD, ORAL; 4 MG, BID, ORAL
     Route: 048
     Dates: start: 20021128, end: 20021128
  2. TACROLIMUS [Suspect]
     Indication: RENAL TRANSPLANT
     Dosage: 10 MG, UID/QD, ORAL; 4 MG, BID, ORAL
     Route: 048
     Dates: start: 20021129
  3. DACLIZUMAB(DACLIZUMAB) [Suspect]
     Indication: RENAL TRANSPLANT
     Dosage: 200 MG, /D, IV NOS
     Route: 041
     Dates: start: 20021128
  4. MYCOPHENOLATE MOFETIL [Suspect]
     Indication: RENAL TRANSPLANT
     Dosage: 1 G, UID/QD; ORAL; 250 MG BID, ORAL
     Route: 048
     Dates: start: 20021128
  5. MYCOPHENOLATE MOFETIL [Suspect]
     Indication: RENAL TRANSPLANT
     Dosage: 1 G, UID/QD; ORAL; 250 MG BID, ORAL
     Route: 048
     Dates: start: 20030313
  6. METHYLPREDNISOLONE 4MG TAB [Suspect]
     Indication: RENAL TRANSPLANT
     Dosage: 125 MG, UID/QD, IV NOS; 80 MG, UID/QD, ORAL
     Route: 041
     Dates: start: 20021128, end: 20021129
  7. METHYLPREDNISOLONE 4MG TAB [Suspect]
     Indication: RENAL TRANSPLANT
     Dosage: 125 MG, UID/QD, IV NOS; 80 MG, UID/QD, ORAL
     Route: 041
     Dates: start: 20021130
  8. ACTRAPHANE (INSULIN HUMAN, INSULIN HUMAN INJECTION, ISOPHANE) [Concomitant]
  9. CIPROFLOXACIN [Concomitant]
  10. COTRIM DS [Concomitant]
  11. CYMEVEN (GANCICLOVIR SODIUM) [Concomitant]
  12. METOPROLOL SUCCINATE [Concomitant]
  13. NORVASC [Concomitant]
  14. PANTOPRAZOLE SODIUM [Concomitant]
  15. DIBLOCIN (DOXAZOSIN MESILATE) [Concomitant]

REACTIONS (5)
  - BLOOD CREATININE INCREASED [None]
  - DEHYDRATION [None]
  - DIARRHOEA [None]
  - HYPERURICAEMIA [None]
  - URETERAL STENT INSERTION [None]
